FAERS Safety Report 15995482 (Version 3)
Quarter: 2019Q2

REPORT INFORMATION
  Report Type: Spontaneous
  Country: US (occurrence: US)
  Receive Date: 20190222
  Receipt Date: 20190415
  Transmission Date: 20190711
  Serious: No
  Sender: FDA-Public Use
  Company Number: US-JNJFOC-20190210922

PATIENT
  Age: 77 Year
  Sex: Male
  Weight: 77.11 kg

DRUGS (6)
  1. XARELTO [Suspect]
     Active Substance: RIVAROXABAN
     Indication: CEREBROVASCULAR ACCIDENT PROPHYLAXIS
     Route: 048
     Dates: start: 201708
  2. XARELTO [Suspect]
     Active Substance: RIVAROXABAN
     Indication: ATRIAL FIBRILLATION
     Route: 048
     Dates: start: 201708
  3. XARELTO [Suspect]
     Active Substance: RIVAROXABAN
     Indication: ATRIAL FIBRILLATION
     Route: 048
  4. XARELTO [Suspect]
     Active Substance: RIVAROXABAN
     Indication: CEREBROVASCULAR ACCIDENT PROPHYLAXIS
     Route: 048
  5. LIPITOR [Concomitant]
     Active Substance: ATORVASTATIN CALCIUM
     Route: 065
  6. PROPAFENONE. [Concomitant]
     Active Substance: PROPAFENONE
     Route: 065

REACTIONS (5)
  - Renal disorder [Not Recovered/Not Resolved]
  - Product label issue [Unknown]
  - Wrong technique in product usage process [Unknown]
  - Underdose [Unknown]
  - Product size issue [Unknown]

NARRATIVE: CASE EVENT DATE: 20190204
